FAERS Safety Report 8545303-4 (Version None)
Quarter: 2012Q3

REPORT INFORMATION
  Report Type: 
  Country: None (occurrence: None)
  Receive Date: 20120727
  Receipt Date: 20120719
  Transmission Date: 20120928
  Serious: Yes (Hospitalization)
  Sender: FDA-Public Use
  Company Number: JP-AMGEN-JPNCT2012046835

PATIENT
  Age: 63 Year
  Sex: Female
  Weight: 55 kg

DRUGS (11)
  1. ROMIPLOSTIM - KHK [Suspect]
     Indication: IDIOPATHIC THROMBOCYTOPENIC PURPURA
     Dosage: 1 MG/KG, QWK
     Route: 058
     Dates: start: 20110922
  2. MAGLAX [Concomitant]
     Indication: CONSTIPATION
     Dosage: UNCERTAINTY
     Route: 048
  3. ROMIPLOSTIM - KHK [Suspect]
     Dosage: 2 MG/KG, QWK
     Route: 058
     Dates: start: 20111027, end: 20111102
  4. ROMIPLOSTIM - KHK [Suspect]
     Dosage: 4 MG/KG, QWK
     Route: 058
     Dates: start: 20120119, end: 20120316
  5. PREDNISOLONE [Concomitant]
     Indication: IDIOPATHIC THROMBOCYTOPENIC PURPURA
     Dosage: 10 MG, UNK
     Route: 048
     Dates: start: 20110908, end: 20120321
  6. NEO-MERCAZOLE TAB [Concomitant]
     Indication: HYPERTHYROIDISM
     Dosage: UNCERTAINTY
     Route: 065
  7. ROMIPLOSTIM - KHK [Suspect]
     Dosage: 3 MG/KG, QWK
     Route: 058
     Dates: start: 20111110, end: 20120112
  8. ALENDRONATE SODIUM [Concomitant]
     Indication: OSTEOPOROSIS
     Dosage: UNCERTAINTY
     Route: 065
  9. HYALEIN [Concomitant]
     Indication: SJOGREN'S SYNDROME
     Dosage: UNCERTAINTY
     Route: 047
  10. SELBEX [Concomitant]
     Indication: GASTRITIS
     Dosage: UNCERTAINTY
     Route: 048
  11. INDERAL [Concomitant]
     Indication: HYPERTHYROIDISM
     Dosage: UNCERTAINTY
     Route: 065

REACTIONS (1)
  - SUBDURAL HAEMATOMA [None]
